FAERS Safety Report 24831683 (Version 1)
Quarter: 2025Q1

REPORT INFORMATION
  Report Type: Spontaneous
  Country: US (occurrence: None)
  Receive Date: 20250110
  Receipt Date: 20250110
  Transmission Date: 20250409
  Serious: Yes (Hospitalization)
  Sender: FDA-CTU
  Company Number: None

PATIENT
  Sex: Male

DRUGS (2)
  1. WILATE - VON WILLEBRAND FACTOR/COAGULATION FACTOR VIII COMPLEX (HUMAN) [Suspect]
     Active Substance: HUMAN COAGULATION FACTOR VIII/VON WILLEBRAND FACTOR COMPLEX
     Indication: Von Willebrand^s disease
     Dosage: FREQUENCY : WEEKLY;?NFUSE 4120 RCOF UNITS (3708-4532) SLOW IV PUSH EVERY 7 DAYS FOR PROPYHYLAXIS. DOSE AND ROUTE OF ADMINISTRATION INFUSE 2000 RCOF UNITS (1800-2200) SLOW IV PUSH EVERY 12-24 HOURS AS NEEDED FOR ACUTE BLEED OR AS NEEDED PRIOR O ACTIVITY HAT COULD MAKE PRONE TO WRIST BLEED
     Route: 048
     Dates: start: 202212
  2. WILATE - VON WILLEBRAND FACTOR/COAGULATION FACTOR VIII COMPLEX (HUMAN) [Suspect]
     Active Substance: HUMAN COAGULATION FACTOR VIII/VON WILLEBRAND FACTOR COMPLEX
     Indication: Von Willebrand^s disease
     Dosage: FREQUENCY : WEEKLY;?NFUSE 4120 RCOF UNITS (3708-4532) SLOW IV PUSH EVERY 7 DAYS FOR PROPYHYLAXIS. DOSE AND ROUTE OF ADMINISTRATION INFUSE 2000 RCOF UNITS (1800-2200) SLOW IV PUSH EVERY 12-24 HOURS AS NEEDED FOR ACUTE BLEED OR AS NEEDED PRIOR O ACTIVITY HAT COULD MAKE PRONE TO WRIST BLEED
     Route: 048

REACTIONS (1)
  - Internal haemorrhage [None]
